FAERS Safety Report 9931787 (Version 12)
Quarter: 2015Q3

REPORT INFORMATION
  Report Type: Report from Study
  Country: CA (occurrence: CA)
  Receive Date: 20140228
  Receipt Date: 20150830
  Transmission Date: 20151125
  Serious: Yes (Hospitalization, Other)
  Sender: FDA-Public Use
  Company Number: CA-ROCHE-1319387

PATIENT
  Age: 68 Year
  Sex: Female
  Weight: 44 kg

DRUGS (8)
  1. APO-HYDROXYQUINE [Concomitant]
  2. DOMPERIDONE [Concomitant]
     Active Substance: DOMPERIDONE
     Dosage: APO-DOMPERIDONE
     Route: 065
  3. ACTEMRA [Suspect]
     Active Substance: TOCILIZUMAB
     Indication: RHEUMATOID ARTHRITIS
     Route: 042
     Dates: start: 20131109
  4. TAPAZOLE [Concomitant]
     Active Substance: METHIMAZOLE
  5. CITALOPRAM [Concomitant]
     Active Substance: CITALOPRAM HYDROBROMIDE
     Dosage: JAMP-CITALOPRAM
     Route: 065
  6. OMEPRAZOLE. [Concomitant]
     Active Substance: OMEPRAZOLE
     Dosage: RATIO-OMEPRAZOLE
     Route: 065
  7. ARTHROTEC [Concomitant]
     Active Substance: DICLOFENAC SODIUM\MISOPROSTOL
  8. APO-PREDNISONE [Concomitant]
     Active Substance: PREDNISONE

REACTIONS (15)
  - Abdominal pain upper [Unknown]
  - Blood sodium decreased [Unknown]
  - Autonomic neuropathy [Unknown]
  - Poor venous access [Unknown]
  - Hypertension [Unknown]
  - Lower respiratory tract infection [Unknown]
  - Blood pressure increased [Unknown]
  - Urinary tract infection [Not Recovered/Not Resolved]
  - Infusion related reaction [Unknown]
  - Heart rate increased [Unknown]
  - Nausea [Unknown]
  - Weight increased [Not Recovered/Not Resolved]
  - Oxygen saturation decreased [Unknown]
  - Hypotension [Unknown]
  - Oxygen saturation decreased [Unknown]

NARRATIVE: CASE EVENT DATE: 20140401
